FAERS Safety Report 4370636-5 (Version None)
Quarter: 2004Q2

REPORT INFORMATION
  Report Type: 
  Country: None (occurrence: None)
  Receive Date: 20040525
  Receipt Date: 20040511
  Transmission Date: 20050107
  Serious: Yes (Death)
  Sender: FDA-Public Use
  Company Number: DE-JNJFOC-20040502454

PATIENT
  Age: 37 Year
  Sex: Female

DRUGS (2)
  1. TOPAMAX [Suspect]
     Indication: EPILEPSY
     Dosage: 100 MG, IN 1 DAY, ORAL
     Route: 048
     Dates: start: 20031001
  2. TRILEPTAL [Suspect]
     Indication: EPILEPSY
     Dosage: 1500 MG, IN 1 DAY
     Dates: start: 20021001

REACTIONS (2)
  - BLOOD SODIUM DECREASED [None]
  - SUDDEN DEATH [None]
